FAERS Safety Report 17354479 (Version 2)
Quarter: 2020Q1

REPORT INFORMATION
  Report Type: Report from Study
  Country: ES (occurrence: ES)
  Receive Date: 20200131
  Receipt Date: 20200221
  Transmission Date: 20200409
  Serious: Yes (Hospitalization)
  Sender: FDA-Public Use
  Company Number: ES-EISAI MEDICAL RESEARCH-EC-2020-069053

PATIENT
  Age: 53 Year
  Sex: Female

DRUGS (2)
  1. PEMBROLIZUMAB. [Concomitant]
     Active Substance: PEMBROLIZUMAB
     Route: 042
     Dates: start: 20190313
  2. LENVIMA [Suspect]
     Active Substance: LENVATINIB
     Indication: METASTATIC MALIGNANT MELANOMA
     Route: 048
     Dates: start: 20190313, end: 20190918

REACTIONS (1)
  - Skin graft detachment [Recovered/Resolved with Sequelae]

NARRATIVE: CASE EVENT DATE: 20190919
